FAERS Safety Report 7421913-2 (Version None)
Quarter: 2011Q2

REPORT INFORMATION
  Report Type: 
  Country: None (occurrence: None)
  Receive Date: 20110418
  Receipt Date: 20110405
  Transmission Date: 20111010
  Serious: Yes (Hospitalization)
  Sender: FDA-Public Use
  Company Number: JP-ELI_LILLY_AND_COMPANY-JP201104001328

PATIENT
  Age: 57 Year
  Sex: Female

DRUGS (8)
  1. DORAL [Concomitant]
     Dosage: UNK
     Route: 048
     Dates: end: 20110402
  2. VEGETAMIN A [Concomitant]
     Dosage: UNK
     Route: 048
     Dates: end: 20110402
  3. LEVOMEPROMAZIN                     /00038602/ [Concomitant]
     Dosage: UNK
     Route: 048
     Dates: end: 20110402
  4. BENZALIN [Concomitant]
     Dosage: UNK
     Dates: end: 20110402
  5. SENNARIDE [Concomitant]
     Dosage: UNK
     Dates: end: 20110402
  6. ZYPREXA [Suspect]
     Indication: SCHIZOPHRENIA
     Dosage: 20 MG, QD
     Route: 048
     Dates: start: 20100601, end: 20110402
  7. PANTOSIN [Concomitant]
     Dosage: UNK
     Dates: end: 20110402
  8. VENCOLL [Concomitant]
     Dosage: UNK
     Dates: end: 20110402

REACTIONS (4)
  - PROTEIN TOTAL DECREASED [None]
  - PLATELET COUNT DECREASED [None]
  - GRANULOCYTE COUNT DECREASED [None]
  - C-REACTIVE PROTEIN INCREASED [None]
